FAERS Safety Report 15779115 (Version 1)
Quarter: 2019Q1

REPORT INFORMATION
  Report Type: Spontaneous
  Country: IN (occurrence: IN)
  Receive Date: 20190101
  Receipt Date: 20190101
  Transmission Date: 20190417
  Serious: Yes (Hospitalization, Other)
  Sender: FDA-Public Use
  Company Number: PHHY2018IN198175

PATIENT
  Age: 60 Year
  Sex: Female

DRUGS (1)
  1. REVOLADE [Suspect]
     Active Substance: ELTROMBOPAG
     Indication: SERUM AMYLOID A PROTEIN INCREASED
     Dosage: 50 MG, QD
     Route: 048
     Dates: start: 20180128, end: 20181229

REACTIONS (3)
  - Platelet count decreased [Not Recovered/Not Resolved]
  - Melaena [Not Recovered/Not Resolved]
  - Haemoglobin decreased [Not Recovered/Not Resolved]

NARRATIVE: CASE EVENT DATE: 20181101
